FAERS Safety Report 17609700 (Version 2)
Quarter: 2021Q1

REPORT INFORMATION
  Report Type: Report from Study
  Country: JP (occurrence: JP)
  Receive Date: 20200401
  Receipt Date: 20210209
  Transmission Date: 20210419
  Serious: No
  Sender: FDA-Public Use
  Company Number: JP-VIFOR (INTERNATIONAL) INC.-VIT-2020-05048

PATIENT
  Age: 63 Year
  Sex: Male
  Weight: 68.3 kg

DRUGS (18)
  1. ROCALTROL [Concomitant]
     Active Substance: CALCITRIOL
     Route: 048
  2. ARTIST [Concomitant]
     Active Substance: CARVEDILOL
     Route: 048
  3. PREDONINE [Concomitant]
     Active Substance: PREDNISOLONE
     Route: 048
     Dates: start: 20160901, end: 20170309
  4. PREDONINE [Concomitant]
     Active Substance: PREDNISOLONE
     Route: 048
  5. AZILVA [Concomitant]
     Active Substance: AZILSARTAN KAMEDOXOMIL
     Route: 048
     Dates: start: 20161012
  6. TRAZENTA [Concomitant]
     Active Substance: LINAGLIPTIN
     Route: 048
  7. NESP [Concomitant]
     Active Substance: DARBEPOETIN ALFA
     Dates: start: 20170709
  8. LASIX [Concomitant]
     Active Substance: FUROSEMIDE
     Indication: POLYURIA
     Route: 048
  9. PREDONINE [Concomitant]
     Active Substance: PREDNISOLONE
     Route: 048
     Dates: start: 20170309, end: 20170907
  10. PREDONINE [Concomitant]
     Active Substance: PREDNISOLONE
     Route: 048
     Dates: start: 20170907
  11. VELPHORO [Suspect]
     Active Substance: SUCROFERRIC OXYHYDROXIDE
     Indication: CHRONIC KIDNEY DISEASE
  12. PREDONINE [Concomitant]
     Active Substance: PREDNISOLONE
     Route: 048
     Dates: end: 20160901
  13. NESP [Concomitant]
     Active Substance: DARBEPOETIN ALFA
     Dates: end: 20170723
  14. NESP [Concomitant]
     Active Substance: DARBEPOETIN ALFA
     Dates: start: 20170806, end: 20170902
  15. TAKEPRON [Concomitant]
     Active Substance: LANSOPRAZOLE
     Route: 048
  16. PRECIPITATED CALCIUM CARBONATE [Concomitant]
     Active Substance: CALCIUM CARBONATE
     Indication: HYPERPHOSPHATAEMIA
     Route: 048
  17. FEBURIC [Concomitant]
     Active Substance: FEBUXOSTAT
     Route: 048
  18. VELPHORO [Suspect]
     Active Substance: SUCROFERRIC OXYHYDROXIDE
     Indication: HYPERPHOSPHATAEMIA
     Route: 048
     Dates: start: 20160528

REACTIONS (1)
  - Hypertension [Recovering/Resolving]

NARRATIVE: CASE EVENT DATE: 20170727
